FAERS Safety Report 17714136 (Version 3)
Quarter: 2020Q2

REPORT INFORMATION
  Report Type: Report from Study
  Country: None (occurrence: SE)
  Receive Date: 20200427
  Receipt Date: 20200611
  Transmission Date: 20200714
  Serious: Yes (Hospitalization, Other)
  Sender: FDA-Public Use
  Company Number: SE-ABBVIE-20K-150-3375234-00

PATIENT
  Sex: Male
  Weight: 74 kg

DRUGS (6)
  1. DUODOPA [Suspect]
     Active Substance: CARBIDOPA\LEVODOPA
     Indication: PARKINSON^S DISEASE
     Route: 050
     Dates: start: 20110105, end: 201101
  2. AMANTADINE. [Suspect]
     Active Substance: AMANTADINE HYDROCHLORIDE
     Indication: PRODUCT USED FOR UNKNOWN INDICATION
     Route: 065
  3. AMANTADINE. [Suspect]
     Active Substance: AMANTADINE HYDROCHLORIDE
     Dosage: HALVED DOSE
     Route: 065
  4. DUODOPA [Suspect]
     Active Substance: CARBIDOPA\LEVODOPA
     Route: 050
     Dates: start: 20110119, end: 201101
  5. DUODOPA [Suspect]
     Active Substance: CARBIDOPA\LEVODOPA
     Dosage: THE CONTINUOUS DOSE WAS DECREASED FROM 3.8 ML/H TO 3.3 ML/H
     Route: 050
  6. DUODOPA [Suspect]
     Active Substance: CARBIDOPA\LEVODOPA
     Route: 050
     Dates: start: 20110119

REACTIONS (19)
  - Balance disorder [Unknown]
  - Slow speech [Unknown]
  - Weight decreased [Unknown]
  - Subdural haematoma [Recovering/Resolving]
  - Haemorrhage [Unknown]
  - Gait disturbance [Unknown]
  - Pain in extremity [Unknown]
  - Hallucination [Recovering/Resolving]
  - Screaming [Unknown]
  - Walking aid user [Unknown]
  - Dyskinesia [Unknown]
  - Hyperkinesia [Unknown]
  - Feeling abnormal [Unknown]
  - Stoma site erythema [Unknown]
  - Unresponsive to stimuli [Unknown]
  - Impaired self-care [Unknown]
  - Fall [Recovering/Resolving]
  - Loss of personal independence in daily activities [Unknown]
  - Nervousness [Unknown]

NARRATIVE: CASE EVENT DATE: 2020
